FAERS Safety Report 13654293 (Version 1)
Quarter: 2017Q2

REPORT INFORMATION
  Report Type: Spontaneous
  Country: JP (occurrence: JP)
  Receive Date: 20170614
  Receipt Date: 20170614
  Transmission Date: 20170830
  Serious: Yes (Other)
  Sender: FDA-Public Use
  Company Number: JP-MYLANLABS-2017M1035738

PATIENT

DRUGS (3)
  1. DALTEPARIN SODIUM [Suspect]
     Active Substance: DALTEPARIN SODIUM
     Dosage: 5,000 UNITS TWICE DAILY
     Route: 058
  2. WARFARIN [Suspect]
     Active Substance: WARFARIN
     Indication: DISSEMINATED INTRAVASCULAR COAGULATION
     Route: 065
  3. DALTEPARIN SODIUM [Suspect]
     Active Substance: DALTEPARIN SODIUM
     Indication: DISSEMINATED INTRAVASCULAR COAGULATION
     Dosage: 5,000 UNITS/DAY
     Route: 041

REACTIONS (3)
  - Drug ineffective [Unknown]
  - Disseminated intravascular coagulation [Unknown]
  - Condition aggravated [Unknown]
